FAERS Safety Report 4560304-9 (Version None)
Quarter: 2005Q1

REPORT INFORMATION
  Report Type: 
  Country: None (occurrence: None)
  Receive Date: 20050125
  Receipt Date: 20041227
  Transmission Date: 20050727
  Serious: Yes (Hospitalization)
  Sender: FDA-Public Use
  Company Number: 200414036JP

PATIENT
  Age: 8 Year
  Sex: Female
  Weight: 34 kg

DRUGS (1)
  1. KETEK [Suspect]
     Indication: SCARLET FEVER
     Route: 048
     Dates: start: 20041213, end: 20041217

REACTIONS (5)
  - EPSTEIN-BARR VIRUS ANTIBODY POSITIVE [None]
  - INFECTIOUS MONONUCLEOSIS [None]
  - LYMPHADENOPATHY [None]
  - PHARYNGEAL ERYTHEMA [None]
  - PHARYNGOLARYNGEAL PAIN [None]
